FAERS Safety Report 7679679-7 (Version None)
Quarter: 2011Q3

REPORT INFORMATION
  Report Type: 
  Country: None (occurrence: None)
  Receive Date: 20110812
  Receipt Date: 20110801
  Transmission Date: 20111222
  Serious: Yes (Other)
  Sender: FDA-Public Use
  Company Number: JP-ELI_LILLY_AND_COMPANY-JP201107005158

PATIENT
  Age: 56 Year
  Sex: Female
  Weight: 41 kg

DRUGS (13)
  1. CAMOSTATE [Concomitant]
     Dosage: 200 MG, TID
     Route: 048
  2. LANSOPRAZOLE [Concomitant]
     Dosage: UNK
     Route: 048
  3. EVISTA [Suspect]
     Dosage: 60 MG, QD
     Route: 048
     Dates: start: 20110705, end: 20110730
  4. BUFFERIN [Concomitant]
     Dosage: 81 MG, QD
     Route: 048
  5. JUZENTAIHOTO [Concomitant]
     Dosage: UNK
     Route: 048
  6. SARPOGRELATE HYDROCHLORIDE [Concomitant]
     Dosage: 1 DF, QD
     Route: 048
  7. ASPARA-CA [Concomitant]
  8. SAIKOKEISHITOU [Concomitant]
     Dosage: UNK
     Route: 048
  9. BERIZYM [Concomitant]
     Dosage: 2 G, TID
     Route: 048
  10. FOLIC ACID [Concomitant]
     Dosage: UNK
     Route: 048
  11. EVISTA [Suspect]
     Indication: OSTEOPOROSIS
     Dosage: UNK
     Route: 048
  12. ANSATUR [Concomitant]
     Dosage: 2 DF, TID
     Route: 048
  13. ONEALFA [Concomitant]

REACTIONS (1)
  - GALACTORRHOEA [None]
